FAERS Safety Report 13693760 (Version 1)
Quarter: 2017Q2

REPORT INFORMATION
  Report Type: Spontaneous
  Country: US (occurrence: US)
  Receive Date: 20170626
  Receipt Date: 20170626
  Transmission Date: 20170830
  Serious: Yes (Hospitalization)
  Sender: FDA-Public Use
  Company Number: None

PATIENT
  Age: 13 Year
  Sex: Female
  Weight: 48 kg

DRUGS (1)
  1. TRIMETHOPRIM/SULFAMETHOXAZOLE [Suspect]
     Active Substance: SULFAMETHOXAZOLE\TRIMETHOPRIM
     Indication: SKIN LESION
     Route: 048

REACTIONS (8)
  - Burning sensation [None]
  - Head discomfort [None]
  - Oropharyngeal pain [None]
  - Photophobia [None]
  - Rash [None]
  - Feeling hot [None]
  - Headache [None]
  - Musculoskeletal discomfort [None]

NARRATIVE: CASE EVENT DATE: 20170623
